FAERS Safety Report 8835495 (Version 2)
Quarter: 2012Q4

REPORT INFORMATION
  Report Type: 
  Country: US (occurrence: US)
  Receive Date: 20121011
  Receipt Date: 20121017
  Transmission Date: 20130627
  Serious: No
  Sender: FDA-Public Use
  Company Number: US-TEVA-364014USA

PATIENT
  Sex: Female
  Weight: 59.02 kg

DRUGS (7)
  1. PLAN B ONE-STEP [Suspect]
     Indication: POST COITAL CONTRACEPTION
     Dosage: 1.5 Milligram Daily;
     Route: 048
     Dates: start: 20120914, end: 20120914
  2. GIANVI [Concomitant]
     Indication: CONTRACEPTION
     Dates: start: 2009
  3. LAMICTAL [Concomitant]
     Indication: DEPRESSION
     Dates: start: 2010
  4. PRISTIQ [Concomitant]
     Indication: DEPRESSION
     Dates: start: 2010
  5. SEROQUEL [Concomitant]
     Indication: DEPRESSION
     Dates: start: 2012
  6. DEPLIN [Concomitant]
     Indication: DEPRESSION
     Dates: start: 2009
  7. SINGULAIR [Concomitant]
     Indication: HYPERSENSITIVITY

REACTIONS (1)
  - Menstruation irregular [Recovered/Resolved]
